FAERS Safety Report 8779688 (Version 2)
Quarter: 2013Q1

REPORT INFORMATION
  Report Type: Spontaneous
  Country: US (occurrence: US)
  Receive Date: 20120911
  Receipt Date: 20130111
  Transmission Date: 20140127
  Serious: Yes (Other)
  Sender: FDA-Public Use
  Company Number: US-BAYER-2012-092459

PATIENT
  Age: 41 Year
  Sex: Female
  Weight: 65.76 kg

DRUGS (1)
  1. MIRENA [Suspect]
     Indication: CONTRACEPTION
     Dosage: 20 MCG/24HR, CONT
     Route: 015
     Dates: start: 20120830, end: 20120905

REACTIONS (7)
  - Vaginal haemorrhage [None]
  - Device issue [None]
  - Migraine [Recovering/Resolving]
  - Abdominal pain [None]
  - Abdominal pain lower [Recovering/Resolving]
  - Pain [Recovering/Resolving]
  - Device dislocation [None]
